FAERS Safety Report 17386589 (Version 1)
Quarter: 2020Q1

REPORT INFORMATION
  Report Type: Spontaneous
  Country: US (occurrence: US)
  Receive Date: 20200206
  Receipt Date: 20200206
  Transmission Date: 20200409
  Serious: No
  Sender: FDA-Public Use
  Company Number: US-VERTEX PHARMACEUTICALS-2020-001708

PATIENT
  Sex: Female

DRUGS (2)
  1. PROGRAF [Concomitant]
     Active Substance: TACROLIMUS
     Dosage: REDUCED DOSE
  2. TRIKAFTA [Suspect]
     Active Substance: ELEXACAFTOR\IVACAFTOR\TEZACAFTOR
     Indication: CYSTIC FIBROSIS
     Dosage: 2 TABLETS(ELEXACAFTOR 100 MG, TEZACAFTOR 50 MG, IVACAFTOR 75 MG) AM; 1 TABLET (IVACAFTOR 150 MG) PM
     Route: 048
     Dates: start: 20191211, end: 20200108

REACTIONS (5)
  - Eye pruritus [Not Recovered/Not Resolved]
  - Nausea [Unknown]
  - Gastrointestinal disorder [Recovered/Resolved]
  - Viral infection [Not Recovered/Not Resolved]
  - Rash [Not Recovered/Not Resolved]
